FAERS Safety Report 15565677 (Version 2)
Quarter: 2018Q4

REPORT INFORMATION
  Report Type: Spontaneous
  Country: JP (occurrence: JP)
  Receive Date: 20181030
  Receipt Date: 20181112
  Transmission Date: 20190205
  Serious: Yes (Hospitalization)
  Sender: FDA-Public Use
  Company Number: PHJP2018JP017552

PATIENT
  Age: 2 Month
  Sex: Female

DRUGS (1)
  1. TEGRETOL [Suspect]
     Active Substance: CARBAMAZEPINE
     Indication: CONVULSION IN CHILDHOOD
     Dosage: 350 MG, QD
     Route: 048
     Dates: start: 20180916

REACTIONS (3)
  - Somnolence [Recovered/Resolved]
  - Accidental overdose [Recovered/Resolved]
  - Drug level increased [Recovered/Resolved]

NARRATIVE: CASE EVENT DATE: 20180916
